FAERS Safety Report 13669324 (Version 2)
Quarter: 2017Q3

REPORT INFORMATION
  Report Type: Report from Study
  Country: US (occurrence: US)
  Receive Date: 20170620
  Receipt Date: 20170825
  Transmission Date: 20171127
  Serious: Yes (Hospitalization)
  Sender: FDA-Public Use
  Company Number: PHEH2017US018363

PATIENT
  Age: 40 Year
  Sex: Female

DRUGS (2)
  1. ENTRESTO [Suspect]
     Active Substance: SACUBITRIL\VALSARTAN
     Dosage: 1 DF (SACUBITRIL 51 MG/VALSARTAN 49 MG), UNK
     Route: 065
  2. ENTRESTO [Suspect]
     Active Substance: SACUBITRIL\VALSARTAN
     Indication: PRODUCT USED FOR UNKNOWN INDICATION
     Dosage: 1 DF (SACUBITRIL 26 MG/VALSARTAN 24 MG), UNK
     Route: 065

REACTIONS (8)
  - Weight increased [Unknown]
  - Dyspnoea [Unknown]
  - Diabetes mellitus [Unknown]
  - Nausea [Unknown]
  - Hypertension [Unknown]
  - Asthenia [Unknown]
  - Dizziness [Unknown]
  - Anxiety [Unknown]
